FAERS Safety Report 24036621 (Version 1)
Quarter: 2024Q3

REPORT INFORMATION
  Report Type: Spontaneous
  Country: US (occurrence: US)
  Receive Date: 20240701
  Receipt Date: 20240701
  Transmission Date: 20241016
  Serious: Yes (Other)
  Sender: FRESENIUS KABI
  Company Number: US-FreseniusKabi-FK202410169

PATIENT
  Age: 54 Year
  Sex: Female

DRUGS (6)
  1. IFOSFAMIDE [Suspect]
     Active Substance: IFOSFAMIDE
     Indication: Leiomyosarcoma metastatic
     Dosage: HIGH DOSE
  2. METHYLENE BLUE [Suspect]
     Active Substance: METHYLENE BLUE
     Indication: Neurotoxicity
     Dosage: 0.66 MG/KG, RECEIVED 4 DOSES
     Route: 042
  3. BUPROPION [Concomitant]
     Active Substance: BUPROPION
     Indication: Leiomyosarcoma metastatic
  4. FLUOXETINE [Concomitant]
     Active Substance: FLUOXETINE HYDROCHLORIDE
     Indication: Leiomyosarcoma metastatic
  5. MESNA [Concomitant]
     Active Substance: MESNA
     Indication: Leiomyosarcoma metastatic
  6. DOXORUBICIN [Concomitant]
     Active Substance: DOXORUBICIN
     Indication: Leiomyosarcoma metastatic

REACTIONS (2)
  - Neurotoxicity [Recovered/Resolved]
  - Serotonin syndrome [Recovered/Resolved]
